FAERS Safety Report 6652729-2 (Version None)
Quarter: 2010Q1

REPORT INFORMATION
  Report Type: 
  Country: None (occurrence: None)
  Receive Date: 20100326
  Receipt Date: 20100318
  Transmission Date: 20100710
  Serious: Yes (Other)
  Sender: FDA-Public Use
  Company Number: JP-JNJFOC-20100304535

PATIENT
  Age: 58 Year
  Sex: Male

DRUGS (5)
  1. FENTANYL CITRATE [Suspect]
     Indication: PAIN
     Route: 062
  2. HYPNOTICS AND SEDATIVES [Concomitant]
     Route: 065
  3. ANTIANXIETY MEDICATION NOS [Concomitant]
     Route: 065
  4. OTHER ANALGESICS AND ANTIPYRETICS [Concomitant]
     Route: 065
  5. ANTI-INFLAMMATORY AGENTS [Concomitant]
     Route: 065

REACTIONS (2)
  - ALTERED STATE OF CONSCIOUSNESS [None]
  - TREMOR [None]
